FAERS Safety Report 5837407-1 (Version None)
Quarter: 2008Q3

REPORT INFORMATION
  Report Type: 
  Country: None (occurrence: None)
  Receive Date: 20080807
  Receipt Date: 20080729
  Transmission Date: 20090109
  Serious: Yes (Disabling)
  Sender: FDA-Public Use
  Company Number: US-PFIZER INC-2008042294

PATIENT
  Sex: Male

DRUGS (15)
  1. LYRICA [Suspect]
     Indication: RADICULOPATHY
     Route: 048
  2. LYRICA [Suspect]
     Indication: HERPES ZOSTER
  3. AMBIEN [Concomitant]
  4. ACETYLSALICYLIC ACID SRT [Concomitant]
  5. TAMSULOSIN HCL [Concomitant]
  6. TOPROL-XL [Concomitant]
  7. COUMADIN [Concomitant]
  8. ZOCOR [Concomitant]
  9. TRIAMTERENE AND HYDROCHLOROTHIAZIDE [Concomitant]
     Dosage: FREQ:25-37.5MG UNIT DOSE
  10. PROTONIX [Concomitant]
  11. DURAGESIC-100 [Concomitant]
     Dosage: FREQ:12 MCG/HR
  12. PERCOCET [Concomitant]
     Indication: PAIN
     Dosage: FREQ:AS NEEDED, 5-325MG UNIT DOSE
  13. VALTREX [Concomitant]
  14. AUGMENTIN '125' [Concomitant]
     Indication: SINUSITIS
     Dosage: FREQ:FOR 10 DAYS, 875-125MG UNIT DOSE
  15. NEURONTIN [Concomitant]

REACTIONS (1)
  - DEAFNESS [None]
